FAERS Safety Report 5813762-3 (Version None)
Quarter: 2008Q3

REPORT INFORMATION
  Report Type: 
  Country: None (occurrence: None)
  Receive Date: 20080717
  Receipt Date: 20080709
  Transmission Date: 20090109
  Serious: Yes (Other)
  Sender: FDA-Public Use
  Company Number: PHBS2008TH03303

PATIENT
  Sex: Male
  Weight: 13 kg

DRUGS (5)
  1. EXJADE [Suspect]
     Indication: IRON OVERLOAD
     Dosage: 250 MG/D
     Route: 048
     Dates: start: 20070505, end: 20071027
  2. EXJADE [Suspect]
     Dosage: 250 MG/D
     Route: 048
     Dates: start: 20071110, end: 20071225
  3. EXJADE [Suspect]
     Dosage: 375 MG/D
     Dates: start: 20071226, end: 20080228
  4. BLOOD TRANSFUSION, AUXILIARY PRODUCTS [Concomitant]
  5. FOLIC ACID [Concomitant]
     Indication: HAEMOLYTIC ANAEMIA
     Dosage: 5 MG/DAY
     Dates: start: 20050601

REACTIONS (5)
  - ALANINE AMINOTRANSFERASE INCREASED [None]
  - ASPARTATE AMINOTRANSFERASE INCREASED [None]
  - CYTOMEGALOVIRUS ANTIBODY POSITIVE [None]
  - CYTOMEGALOVIRUS INFECTION [None]
  - HEPATIC ENZYME INCREASED [None]
